FAERS Safety Report 19575401 (Version 1)
Quarter: 2021Q3

REPORT INFORMATION
  Report Type: Spontaneous
  Country: GB (occurrence: GB)
  Receive Date: 20210719
  Receipt Date: 20210719
  Transmission Date: 20211014
  Serious: Yes (Other)
  Sender: FDA-Public Use
  Company Number: GB-SUN PHARMACEUTICAL INDUSTRIES LTD-2021RR-304898

PATIENT
  Age: 67 Year
  Sex: Female

DRUGS (54)
  1. CIPROFLOXACIN. [Concomitant]
     Active Substance: CIPROFLOXACIN
     Indication: PRODUCT USED FOR UNKNOWN INDICATION
     Dosage: 500 MG, 2X/DAY
     Route: 048
     Dates: start: 20180326, end: 20180327
  2. CLEXANE [Concomitant]
     Active Substance: ENOXAPARIN SODIUM
     Indication: PRODUCT USED FOR UNKNOWN INDICATION
     Dosage: 40 MG, 1X/DAY
     Route: 058
     Dates: start: 20180913
  3. CO?AMOXICLAV [Concomitant]
     Active Substance: AMOXICILLIN\CLAVULANATE POTASSIUM
     Indication: PRODUCT USED FOR UNKNOWN INDICATION
     Dosage: 625 MG, (TIME INTERVAL: 0.33 D)
     Route: 048
     Dates: start: 20180326, end: 20180326
  4. MAALOX ANTACID [Concomitant]
     Active Substance: ALUMINUM HYDROXIDE\DIMETHICONE\MAGNESIUM HYDROXIDE
     Indication: GASTROOESOPHAGEAL REFLUX DISEASE
     Dosage: 10 ML, UNK
     Route: 048
     Dates: start: 20170214, end: 20170418
  5. NOZINAN [Concomitant]
     Active Substance: LEVOMEPROMAZINE
     Indication: PRODUCT USED FOR UNKNOWN INDICATION
     Dosage: 6 MG, 1X/DAY
     Route: 048
  6. LETROZOLE. [Suspect]
     Active Substance: LETROZOLE
     Indication: HER2 POSITIVE BREAST CANCER
     Dosage: 2.5 MILLIGRAM, DAILY, 2.5 MG, 1X/DAY
     Route: 048
     Dates: start: 20161111, end: 20171114
  7. ADCAL?D3 [Concomitant]
     Active Substance: CALCIUM CARBONATE\CHOLECALCIFEROL
     Indication: PRODUCT USED FOR UNKNOWN INDICATION
     Dosage: 1 DOSAGE FORM, 1 DF, (1 TABLET), UNK
     Route: 048
     Dates: start: 20160701
  8. AQUEOUS CREAM [Concomitant]
     Indication: PRODUCT USED FOR UNKNOWN INDICATION
     Dosage: UNK
     Route: 061
     Dates: start: 20160819, end: 20161011
  9. DEXAMETHASONE. [Concomitant]
     Active Substance: DEXAMETHASONE
     Dosage: 10 MG, 1X/DAY
     Route: 048
     Dates: start: 20180723, end: 20180801
  10. LORAZEPAM. [Concomitant]
     Active Substance: LORAZEPAM
     Indication: PRODUCT USED FOR UNKNOWN INDICATION
     Dosage: 0.5 MG, UNK
     Route: 048
     Dates: start: 20181005
  11. METOCLOPRAMIDE. [Concomitant]
     Active Substance: METOCLOPRAMIDE
     Indication: GASTROOESOPHAGEAL REFLUX DISEASE
     Dosage: 10 MG, UNK
     Route: 048
     Dates: start: 20170214
  12. NYSTATIN. [Concomitant]
     Active Substance: NYSTATIN
     Indication: PRODUCT USED FOR UNKNOWN INDICATION
     Dosage: 1 ML, (TIME INTERVAL: 0.25 D)
     Route: 048
     Dates: start: 20180917, end: 20180926
  13. POLYFUSOR NA PHOSPHATES [Concomitant]
     Indication: PRODUCT USED FOR UNKNOWN INDICATION
     Dosage: 150 ML, 1X/DAY
     Route: 042
     Dates: start: 20180917, end: 20180917
  14. VANCOMYCIN [Concomitant]
     Active Substance: VANCOMYCIN
     Indication: PRODUCT USED FOR UNKNOWN INDICATION
     Dosage: 1 GRAM, DAILY, 1 G, 1X/DAY
     Route: 042
     Dates: start: 20180327, end: 20180327
  15. DALTEPARIN [Concomitant]
     Active Substance: DALTEPARIN
     Indication: PRODUCT USED FOR UNKNOWN INDICATION
     Dosage: 5000 IU
     Route: 058
     Dates: start: 20180711, end: 20180721
  16. GABAPENTIN. [Concomitant]
     Active Substance: GABAPENTIN
     Indication: PRODUCT USED FOR UNKNOWN INDICATION
     Dosage: 600 MG, (TIME INTERVAL: 0.33 D), UNK
     Route: 048
     Dates: start: 20180213
  17. GABAPENTIN. [Concomitant]
     Active Substance: GABAPENTIN
     Dosage: 900 MG, (TIME INTERVAL: 0.33 D), UNK
     Route: 048
     Dates: start: 20171114, end: 20180212
  18. HYPROMELLOSE [Concomitant]
     Active Substance: HYPROMELLOSES
     Indication: PRODUCT USED FOR UNKNOWN INDICATION
     Dosage: 1 GTT, UNK
     Route: 047
     Dates: start: 20160802
  19. ONDANSETRON [Concomitant]
     Active Substance: ONDANSETRON
     Dosage: 8 MG, WEEKLY
     Route: 048
     Dates: start: 20180220, end: 20180424
  20. RANITIDINE. [Concomitant]
     Active Substance: RANITIDINE
     Indication: PRODUCT USED FOR UNKNOWN INDICATION
     Dosage: 50 MG, WEEKLY
     Route: 042
     Dates: start: 20160617
  21. PACLITAXEL. [Suspect]
     Active Substance: PACLITAXEL
     Dosage: 108 MG, WEEKLY
     Route: 042
     Dates: start: 20180403, end: 20180424
  22. CHLORPHENAMINE [Concomitant]
     Active Substance: CHLORPHENIRAMINE MALEATE
     Indication: RASH
     Dosage: 10 MG, WEEKLY
     Route: 042
     Dates: start: 20180220, end: 20180424
  23. CHLORPHENAMINE [Concomitant]
     Active Substance: CHLORPHENIRAMINE MALEATE
     Dosage: 10 MG, UNK
     Route: 048
     Dates: start: 20170418
  24. DENOSUMAB [Concomitant]
     Active Substance: DENOSUMAB
     Indication: PRODUCT USED FOR UNKNOWN INDICATION
     Dosage: 120 MG, MONTHLY
     Route: 058
     Dates: start: 20160701
  25. DEXAMETHASONE. [Concomitant]
     Active Substance: DEXAMETHASONE
     Dosage: 8 MG, WEEKLY
     Route: 042
     Dates: start: 20180220, end: 20180424
  26. GABAPENTIN. [Concomitant]
     Active Substance: GABAPENTIN
     Dosage: 400 MG, (TIME INTERVAL:), UNK
     Route: 048
  27. GABAPENTIN. [Concomitant]
     Active Substance: GABAPENTIN
     Dosage: 600 MG, (TIME INTERVAL: 0.33 D), UNK
     Route: 048
     Dates: start: 20170215, end: 20171113
  28. TRASTUZUMAB. [Suspect]
     Active Substance: TRASTUZUMAB
     Indication: HER2 POSITIVE BREAST CANCER
     Dosage: 600 MILLIGRAM, 1 DOSE/3 WEEKS, 600 MG, EVERY 3 WEEKS
     Route: 058
     Dates: start: 20160617, end: 20180914
  29. FLUCONAZOLE. [Concomitant]
     Active Substance: FLUCONAZOLE
     Indication: PRODUCT USED FOR UNKNOWN INDICATION
     Dosage: 50 MG, 1X/DAY
     Route: 048
     Dates: start: 20180917, end: 20180926
  30. LAXIDO [Concomitant]
     Active Substance: POLYETHYLENE GLYCOL 3350\POTASSIUM CHLORIDE\SODIUM BICARBONATE\SODIUM CHLORIDE
     Indication: CONSTIPATION
     Dosage: UNK
     Route: 048
     Dates: start: 20170201
  31. MEROPENEM. [Concomitant]
     Active Substance: MEROPENEM
     Indication: PRODUCT USED FOR UNKNOWN INDICATION
     Dosage: 1 G, (TIME INTERVAL: 0.33 D)
     Route: 042
     Dates: start: 20180913, end: 20180921
  32. METOCLOPRAMIDE. [Concomitant]
     Active Substance: METOCLOPRAMIDE
     Dosage: 10 MG, UNK
     Route: 048
     Dates: start: 20160617
  33. BECONASE AQ [Concomitant]
     Active Substance: BECLOMETHASONE DIPROPIONATE MONOHYDRATE
     Indication: PRODUCT USED FOR UNKNOWN INDICATION
     Dosage: UNK UNK, 2X/DAY
     Route: 055
  34. DALTEPARIN [Concomitant]
     Active Substance: DALTEPARIN
     Dosage: 5000 IU
     Route: 058
     Dates: start: 20180325, end: 20180328
  35. DEXAMETHASONE. [Concomitant]
     Active Substance: DEXAMETHASONE
     Indication: PRODUCT USED FOR UNKNOWN INDICATION
     Dosage: 14 MG, 1X/DAY
     Route: 048
     Dates: start: 20180720, end: 20180720
  36. DEXAMETHASONE. [Concomitant]
     Active Substance: DEXAMETHASONE
     Dosage: 8 MG, WEEKLY
     Route: 042
     Dates: start: 20160617
  37. ONDANSETRON [Concomitant]
     Active Substance: ONDANSETRON
     Indication: PRODUCT USED FOR UNKNOWN INDICATION
     Dosage: 8 MILLIGRAM, DAILY, 8 MG, UNK
     Route: 048
     Dates: start: 20160617, end: 20161014
  38. ORAMORPH [Concomitant]
     Active Substance: MORPHINE SULFATE
     Indication: PRODUCT USED FOR UNKNOWN INDICATION
     Dosage: 2.5 MG, UNK
     Route: 048
     Dates: start: 20180913
  39. PARACETAMOL [Concomitant]
     Active Substance: ACETAMINOPHEN
     Indication: PRODUCT USED FOR UNKNOWN INDICATION
     Dosage: 1 G, UNK
     Route: 048
     Dates: start: 20170418
  40. POLYFUSOR NA PHOSPHATES [Concomitant]
     Dosage: 100 ML, 1X/DAY
     Route: 042
     Dates: start: 20180918, end: 20180918
  41. CYCLIZINE [Concomitant]
     Active Substance: CYCLIZINE
     Indication: PRODUCT USED FOR UNKNOWN INDICATION
     Dosage: 50 MG, TIME INTERVAL: 0.33 D
     Route: 048
     Dates: start: 20180327, end: 20180522
  42. DEXAMETHASONE. [Concomitant]
     Active Substance: DEXAMETHASONE
     Dosage: 12 MG, 1X/DAY
     Route: 048
     Dates: start: 20180721, end: 20180723
  43. PHOSPHATE SANDOZ EFFERVESCENT [Concomitant]
     Indication: PRODUCT USED FOR UNKNOWN INDICATION
     Dosage: 1 DF, UNK
     Route: 048
     Dates: start: 20180921, end: 20180924
  44. VANCOMYCIN [Concomitant]
     Active Substance: VANCOMYCIN
     Dosage: 750 MG, UNK
     Route: 042
     Dates: start: 20180328, end: 20180329
  45. PACLITAXEL. [Suspect]
     Active Substance: PACLITAXEL
     Indication: HER2 POSITIVE BREAST CANCER
     Dosage: 141 MILLIGRAM, 1/WEEK, 141 MG, WEEKLY
     Route: 042
     Dates: start: 20180220, end: 20180320
  46. PACLITAXEL. [Suspect]
     Active Substance: PACLITAXEL
     Dosage: 138 MG, WEEKLY
     Route: 042
     Dates: start: 20160617, end: 20161014
  47. VORHYALURONIDASE ALFA [Suspect]
     Active Substance: HYALURONIDASE (HUMAN RECOMBINANT)
     Indication: HER2 POSITIVE BREAST CANCER
     Dosage: 600 MILLIGRAM, 1 DOSE/3 WEEKS, 600 MG, EVERY 3 WEEKS
     Route: 058
     Dates: start: 20160617, end: 20180914
  48. CHLORPHENAMINE [Concomitant]
     Active Substance: CHLORPHENIRAMINE MALEATE
     Dosage: 10 MG, WEEKLY
     Route: 042
     Dates: start: 20160617, end: 20161014
  49. DEXAMETHASONE. [Concomitant]
     Active Substance: DEXAMETHASONE
     Dosage: 8 MG, 2X/DAY
     Route: 048
     Dates: start: 20180717, end: 20180719
  50. MEGACE [Concomitant]
     Active Substance: MEGESTROL ACETATE
     Indication: PRODUCT USED FOR UNKNOWN INDICATION
     Dosage: 160 MILLIGRAM, DAILY, 160 MG, 1X/DAY
     Route: 048
     Dates: start: 20180925, end: 2019
  51. OMEPRAZOLE. [Concomitant]
     Active Substance: OMEPRAZOLE
     Indication: GASTROOESOPHAGEAL REFLUX DISEASE
     Dosage: 20 MILLIGRAM, DAILY, 20 MG, 1X/DAY
     Route: 048
     Dates: start: 20170201, end: 20170214
  52. OMEPRAZOLE. [Concomitant]
     Active Substance: OMEPRAZOLE
     Dosage: 20 MG, 1X/DAY
     Route: 048
     Dates: start: 20180515
  53. POLYFUSOR NA PHOSPHATES [Concomitant]
     Dosage: 100 ML, 1X/DAY
     Route: 042
     Dates: start: 20180920, end: 20180920
  54. RANITIDINE. [Concomitant]
     Active Substance: RANITIDINE
     Dosage: 50 MG, WEEKLY
     Route: 042
     Dates: start: 20180220, end: 20180424

REACTIONS (4)
  - Paraesthesia [Not Recovered/Not Resolved]
  - Neuropathy peripheral [Recovered/Resolved]
  - Erythema [Recovered/Resolved]
  - Fatigue [Recovered/Resolved]

NARRATIVE: CASE EVENT DATE: 20160819
